FAERS Safety Report 8721447 (Version 2)
Quarter: 2012Q4

REPORT INFORMATION
  Report Type: 
  Country: US (occurrence: US)
  Receive Date: 20120813
  Receipt Date: 20121122
  Transmission Date: 20130627
  Serious: Yes (Other)
  Sender: FDA-Public Use
  Company Number: CHPA2012US017628

PATIENT
  Age: 52 Year
  Sex: Female

DRUGS (3)
  1. EXCEDRIN EXTRA STRENGTH [Suspect]
     Indication: MIGRAINE
     Dosage: 2-4 caplets at a time, QD
     Route: 048
     Dates: start: 1992
  2. EXCEDRIN MIGRAINE [Suspect]
     Indication: MIGRAINE
     Dosage: 2-5 tablets at a time, QD
     Route: 048
  3. GOODYS POWDERS [Concomitant]
     Indication: MIGRAINE
     Dosage: UNK, UNK

REACTIONS (3)
  - Drug dependence [Unknown]
  - Disease recurrence [Unknown]
  - Drug ineffective [Unknown]
